FAERS Safety Report 24222573 (Version 1)
Quarter: 2024Q3

REPORT INFORMATION
  Report Type: Spontaneous
  Country: US (occurrence: US)
  Receive Date: 20240819
  Receipt Date: 20240819
  Transmission Date: 20241016
  Serious: Yes (Other)
  Sender: MERCK
  Company Number: US-009507513-2408USA005031

PATIENT
  Age: 59 Year
  Sex: Male

DRUGS (2)
  1. WELIREG [Suspect]
     Active Substance: BELZUTIFAN
     Indication: Renal cancer
     Dosage: 120 MILLIGRAM (40 MG, 3 TABLETS), QD
     Route: 048
  2. CABOMETYX [Suspect]
     Active Substance: CABOZANTINIB S-MALATE
     Indication: Renal cancer
     Dosage: 40 MILLIGRAM, QD
     Route: 048
     Dates: start: 202404, end: 202406

REACTIONS (4)
  - Malignant neoplasm progression [Unknown]
  - Thyroid function test abnormal [Unknown]
  - Anaemia [Recovering/Resolving]
  - Product dose omission issue [Unknown]
